FAERS Safety Report 8923941 (Version 1)
Quarter: 2012Q4

REPORT INFORMATION
  Report Type: 
  Country: US (occurrence: US)
  Receive Date: 20121127
  Receipt Date: 20121127
  Transmission Date: 20130627
  Serious: Yes (Hospitalization)
  Sender: FDA-Public Use
  Company Number: US-SANOFI-AVENTIS-2012SA084074

PATIENT
  Sex: Female

DRUGS (4)
  1. LANTUS SOLOSTAR [Suspect]
     Dosage: Dose:75 unit(s)
     Route: 058
  2. SOLOSTAR [Suspect]
  3. INSULIN DETEMIR [Concomitant]
  4. INSULIN [Concomitant]

REACTIONS (1)
  - Pneumonia [Unknown]
